FAERS Safety Report 7775802-4 (Version None)
Quarter: 2011Q3

REPORT INFORMATION
  Report Type: 
  Country: None (occurrence: None)
  Receive Date: 20110921
  Receipt Date: 20110914
  Transmission Date: 20111222
  Serious: Yes (Hospitalization)
  Sender: FDA-Public Use
  Company Number: 2011SP039494

PATIENT
  Age: 53 Year
  Sex: Male

DRUGS (8)
  1. DEPAKOTE [Suspect]
     Indication: PSYCHOTIC DISORDER
     Dosage: 1250 MG;QD;PO
     Route: 048
  2. DEPAKOTE [Suspect]
     Indication: BIPOLAR I DISORDER
     Dosage: 1250 MG;QD;PO
     Route: 048
  3. EFFEXOR [Suspect]
     Dosage: 150 MG;QD;PO
     Route: 048
  4. ZOLPIDEM TARTRATE [Suspect]
     Indication: INSOMNIA
     Dosage: 10 MG;QPM; PO
     Route: 048
  5. REVIA [Suspect]
     Indication: ALCOHOL ABUSE
     Dosage: 1MG;QD;PO
     Route: 048
  6. MIRTAZAPINE [Suspect]
     Indication: BIPOLAR I DISORDER
     Dosage: 30 MG;QD;PO
     Route: 048
     Dates: start: 20100901
  7. MIRTAZAPINE [Suspect]
     Indication: PSYCHOTIC DISORDER
     Dosage: 30 MG;QD;PO
     Route: 048
     Dates: start: 20100901
  8. CLONAZEPAM [Suspect]
     Dosage: 4 MG;QPM;PO
     Route: 048

REACTIONS (10)
  - CHOLANGITIS ACUTE [None]
  - HEPATITIS CHOLESTATIC [None]
  - DIABETES MELLITUS [None]
  - INCORRECT DOSE ADMINISTERED [None]
  - SOMNOLENCE [None]
  - DEPRESSED LEVEL OF CONSCIOUSNESS [None]
  - CYTOLYTIC HEPATITIS [None]
  - TOXICITY TO VARIOUS AGENTS [None]
  - METABOLIC SYNDROME [None]
  - PANCREATITIS CHRONIC [None]
